FAERS Safety Report 21361084 (Version 1)
Quarter: 2022Q3

REPORT INFORMATION
  Report Type: Spontaneous
  Country: US (occurrence: US)
  Receive Date: 20220921
  Receipt Date: 20220921
  Transmission Date: 20221027
  Serious: No
  Sender: FDA-Public Use
  Company Number: US-JNJFOC-20220937766

PATIENT
  Sex: Female
  Weight: 59.474 kg

DRUGS (2)
  1. OPSUMIT [Suspect]
     Active Substance: MACITENTAN
     Indication: Pulmonary arterial hypertension
     Route: 048
  2. TYVASO [Suspect]
     Active Substance: TREPROSTINIL
     Indication: Pulmonary arterial hypertension
     Dosage: DPI 16MCG 4 TIMES PER DAY.
     Route: 055

REACTIONS (3)
  - Throat irritation [Unknown]
  - Ear discomfort [Unknown]
  - Gastrooesophageal reflux disease [Unknown]
